FAERS Safety Report 15034780 (Version 1)
Quarter: 2018Q2

REPORT INFORMATION
  Report Type: Spontaneous
  Country: FR (occurrence: FR)
  Receive Date: 20180620
  Receipt Date: 20180620
  Transmission Date: 20180711
  Serious: Yes (Other)
  Sender: FDA-Public Use
  Company Number: FR-MERCK KGAA-2049676

PATIENT
  Sex: Female

DRUGS (1)
  1. NOVOTHYROX [Suspect]
     Active Substance: LEVOTHYROXINE SODIUM
     Indication: PRODUCT USED FOR UNKNOWN INDICATION

REACTIONS (10)
  - Renal failure [None]
  - Cardiac failure [None]
  - Goitre [None]
  - Alopecia [None]
  - International normalised ratio increased [None]
  - Bedridden [None]
  - Weight decreased [None]
  - Paralysis [None]
  - Guillain-Barre syndrome [None]
  - Hepatic failure [None]
